FAERS Safety Report 7690243-6 (Version None)
Quarter: 2011Q3

REPORT INFORMATION
  Report Type: 
  Country: None (occurrence: None)
  Receive Date: 20110818
  Receipt Date: 20110812
  Transmission Date: 20111222
  Serious: Yes (Hospitalization, Other)
  Sender: FDA-Public Use
  Company Number: US-PFIZER INC-2011128943

PATIENT
  Sex: Male

DRUGS (9)
  1. CHANTIX [Suspect]
     Indication: SMOKING CESSATION THERAPY
     Dosage: 0.5MG/1MG
     Dates: start: 20080401, end: 20080401
  2. LOXAPINE [Concomitant]
     Indication: SCHIZOPHRENIA
     Dosage: UNK
     Dates: start: 20010101
  3. INSULIN [Concomitant]
     Indication: DIABETES MELLITUS
     Dosage: UNK
     Dates: start: 19960101
  4. PRAVASTATIN [Concomitant]
     Indication: BLOOD CHOLESTEROL
     Dosage: UNK
     Dates: start: 20010101
  5. RIBAVIRIN [Concomitant]
     Indication: HEPATITIS C
     Dosage: UNK
     Dates: start: 20030101
  6. HYDROCHLOROTHIAZIDE [Concomitant]
     Indication: BLOOD PRESSURE
     Dosage: UNK
     Dates: start: 20070101
  7. REYATAZ [Concomitant]
     Indication: HIV TEST POSITIVE
     Dosage: UNK
     Dates: start: 20020101
  8. ZOLOFT [Concomitant]
     Indication: DEPRESSION
     Dosage: UNK
     Dates: start: 20010101
  9. TRUVADA [Concomitant]
     Indication: HIV TEST POSITIVE
     Dosage: UNK
     Dates: start: 20020101

REACTIONS (8)
  - SUICIDAL IDEATION [None]
  - AGITATION [None]
  - PSYCHOTIC DISORDER [None]
  - AGGRESSION [None]
  - DEPRESSION [None]
  - ANXIETY [None]
  - PARANOIA [None]
  - ABNORMAL BEHAVIOUR [None]
